FAERS Safety Report 9420397 (Version 1)
Quarter: 2013Q3

REPORT INFORMATION
  Report Type: Spontaneous
  Country: US (occurrence: US)
  Receive Date: 20130725
  Receipt Date: 20130725
  Transmission Date: 20140515
  Serious: No
  Sender: FDA-Public Use
  Company Number: US-ABBOTT-13P-163-1069674-00

PATIENT
  Sex: Female
  Weight: 65.83 kg

DRUGS (4)
  1. SYNTHROID 75 MCG [Suspect]
     Indication: RADIOACTIVE IODINE THERAPY
     Dosage: ALTERNATES 75 MCG AND 88 MCG EVERY OTHER DAY
     Route: 048
     Dates: start: 20130320
  2. SYNTHROID 75 MCG [Suspect]
     Dosage: PT TOOK HALF OF 112 MCG AND A WHOLE 25 MCG TO EQUAL 81 MCG
     Route: 048
     Dates: start: 2011, end: 20130319
  3. SYNTHROID 75 MCG [Suspect]
     Route: 048
     Dates: start: 2007, end: 2011
  4. SYNTHROID 88 MCG [Suspect]
     Dosage: ALTERNATES 75 MCG AND 88 MCG EVERY OTHER DAY
     Route: 048
     Dates: start: 20130320

REACTIONS (4)
  - Mobility decreased [Not Recovered/Not Resolved]
  - Arrhythmia [Not Recovered/Not Resolved]
  - Palpitations [Not Recovered/Not Resolved]
  - Blood thyroid stimulating hormone increased [Unknown]
